FAERS Safety Report 7440730-0 (Version None)
Quarter: 2011Q2

REPORT INFORMATION
  Report Type: 
  Country: None (occurrence: None)
  Receive Date: 20110427
  Receipt Date: 20110421
  Transmission Date: 20111010
  Serious: Yes (Hospitalization)
  Sender: FDA-Public Use
  Company Number: IT-PFIZER INC-IT-WYE-H12970010

PATIENT
  Age: 66 Year
  Sex: Female

DRUGS (6)
  1. EFFEXOR XR [Suspect]
     Indication: DEPRESSION
     Dosage: OVERDOSE AMOUNT OF AN UNKNOWN NUMBER OF 75 MG TABLETS
     Route: 048
  2. CYMBALTA [Suspect]
     Dosage: OVERDOSE AMOUNT OF NINE 60 MG TABLETS
     Route: 048
  3. GABAPENTIN [Concomitant]
  4. SERTRALINE [Suspect]
     Indication: DEPRESSION
     Dosage: OVERDOSE AMOUNT OF 50 MG TABLETS
     Route: 048
  5. TRAZODONE [Suspect]
     Dosage: OVERDOSE AMOUNT OF NINE 75 MG TABLETS
     Route: 048
  6. CLONAZEPAM [Suspect]
     Dosage: OVERDOSE AMOUNT OF 0.125 MG DROPS
     Route: 048

REACTIONS (11)
  - FLAT AFFECT [None]
  - ELECTROCARDIOGRAM QT PROLONGED [None]
  - SUICIDE ATTEMPT [None]
  - SINUS BRADYCARDIA [None]
  - CONFUSIONAL STATE [None]
  - DYSARTHRIA [None]
  - HYPOTENSION [None]
  - INTENTIONAL OVERDOSE [None]
  - SOMNOLENCE [None]
  - DISORIENTATION [None]
  - AGITATION [None]
